FAERS Safety Report 6244538-3 (Version None)
Quarter: 2009Q2

REPORT INFORMATION
  Report Type: 
  Country: None (occurrence: None)
  Receive Date: 20090625
  Receipt Date: 20090617
  Transmission Date: 20091009
  Serious: Yes (Hospitalization)
  Sender: FDA-Public Use
  Company Number: FR-JNJFOC-20090103945

PATIENT
  Sex: Male
  Weight: 135 kg

DRUGS (4)
  1. RISPERDAL CONSTA [Suspect]
     Indication: DRUG USE FOR UNKNOWN INDICATION
     Route: 030
  2. CYMBALTA [Concomitant]
     Route: 065
  3. TEMESTA [Concomitant]
     Route: 065
  4. TRILEPTAL [Concomitant]
     Route: 065

REACTIONS (4)
  - HEADACHE [None]
  - LOSS OF CONSCIOUSNESS [None]
  - MALAISE [None]
  - PALPITATIONS [None]
